FAERS Safety Report 6595166-1 (Version None)
Quarter: 2010Q1

REPORT INFORMATION
  Report Type: 
  Country: None (occurrence: None)
  Receive Date: 20100222
  Receipt Date: 20100215
  Transmission Date: 20100710
  Serious: Yes (Hospitalization)
  Sender: FDA-Public Use
  Company Number: GB-MERCK-1002GBR00059

PATIENT
  Age: 43 Year
  Sex: Male

DRUGS (6)
  1. SINGULAIR [Suspect]
     Indication: ASTHMA
     Route: 048
     Dates: start: 20091001, end: 20091223
  2. ALLOPURINOL [Concomitant]
     Route: 065
  3. ROPINIROLE [Concomitant]
     Route: 065
  4. BUDESONIDE AND FORMOTEROL FUMARATE [Concomitant]
     Route: 065
  5. TERBUTALINE SULFATE [Concomitant]
     Route: 055
  6. TRIHEXYPHENIDYL HYDROCHLORIDE [Concomitant]
     Route: 065

REACTIONS (6)
  - AGITATION [None]
  - ANXIETY [None]
  - CONFUSIONAL STATE [None]
  - HALLUCINATION, AUDITORY [None]
  - PARANOIA [None]
  - SYNCOPE [None]
